FAERS Safety Report 25200648 (Version 1)
Quarter: 2025Q2

REPORT INFORMATION
  Report Type: Spontaneous
  Country: ZA (occurrence: ZA)
  Receive Date: 20250415
  Receipt Date: 20250415
  Transmission Date: 20250717
  Serious: Yes (Hospitalization)
  Sender: BAYER
  Company Number: ZA-BAYER-2025A049655

PATIENT
  Age: 53 Year
  Sex: Female

DRUGS (10)
  1. ANGELIQ [Suspect]
     Active Substance: DROSPIRENONE\ESTRADIOL
     Dosage: 1 DF, QD
     Route: 048
  2. QUETIAPINE [Concomitant]
     Active Substance: QUETIAPINE
     Dosage: 100 MG, QD
     Route: 048
  3. VALPROATE SODIUM [Concomitant]
     Active Substance: VALPROATE SODIUM
     Dosage: 500 MG, BID
     Route: 048
  4. CLONAZEPAM [Concomitant]
     Active Substance: CLONAZEPAM
     Dosage: 2 MG, QD
     Route: 048
  5. FOLIC ACID [Concomitant]
     Active Substance: FOLIC ACID
     Dosage: 5 MG, QD
     Route: 048
  6. AMMONIUM CHLORIDE\DIPHENHYDRAMINE\ETOFYLLINE\SODIUM CITRATE\THEOPHYLLI [Concomitant]
     Active Substance: AMMONIUM CHLORIDE\DIPHENHYDRAMINE\ETOFYLLINE\SODIUM CITRATE\THEOPHYLLINE
     Dosage: 10 ML, TID
     Route: 048
  7. IBUPROFEN\PSEUDOEPHEDRINE HYDROCHLORIDE [Concomitant]
     Active Substance: IBUPROFEN\PSEUDOEPHEDRINE HYDROCHLORIDE
     Dosage: 1 DF, TID
     Route: 048
  8. Famucaps [Concomitant]
     Dosage: 2 DF, TID
     Route: 048
  9. VALPROIC ACID [Concomitant]
     Active Substance: VALPROIC ACID
     Dosage: 500 MG, BID
     Route: 048
  10. NORFLEX [Concomitant]
     Active Substance: ORPHENADRINE CITRATE
     Dosage: 100 MG, BID
     Route: 048

REACTIONS (1)
  - Stress [None]
